FAERS Safety Report 8035477-6 (Version None)
Quarter: 2012Q1

REPORT INFORMATION
  Report Type: 
  Country: None (occurrence: None)
  Receive Date: 20120110
  Receipt Date: 20120110
  Transmission Date: 20120608
  Serious: Yes (Hospitalization)
  Sender: FDA-Public Use
  Company Number: None

PATIENT
  Sex: Female

DRUGS (1)
  1. FORTEO [Suspect]
     Dosage: 250MCG DAILY SQ
     Route: 058
     Dates: start: 20111102, end: 20120106

REACTIONS (2)
  - FALL [None]
  - MYOCARDIAL INFARCTION [None]
